FAERS Safety Report 7206028-0 (Version None)
Quarter: 2011Q1

REPORT INFORMATION
  Report Type: 
  Country: None (occurrence: None)
  Receive Date: 20110103
  Receipt Date: 20100526
  Transmission Date: 20110831
  Serious: Yes (Hospitalization)
  Sender: FDA-Public Use
  Company Number: DE-RANBAXY-2010RR-33248

PATIENT

DRUGS (5)
  1. LISINOPRIL [Suspect]
     Indication: HYPERTENSION
     Dosage: 5 MG, UNK
     Route: 048
     Dates: start: 20000101, end: 20091229
  2. BERLOSIN [Concomitant]
     Indication: BACK PAIN
     Dosage: 500 MG, UNK
     Route: 048
     Dates: start: 20091210, end: 20091214
  3. EMBOLEX [Concomitant]
     Indication: THROMBOSIS PROPHYLAXIS
     Dosage: 3000 IU, UNK
     Route: 058
     Dates: start: 20091210, end: 20091214
  4. NORSPAN [Suspect]
     Indication: BACK PAIN
     Dosage: 840 UG, 1/WEEK
     Route: 062
     Dates: start: 20091215, end: 20091229
  5. METOCLOPRAMIDE [Concomitant]
     Indication: NAUSEA
     Dosage: 5 MG, UNK
     Route: 048
     Dates: start: 20091222

REACTIONS (2)
  - VOMITING [None]
  - HYPOTENSION [None]
